FAERS Safety Report 4955773-6 (Version None)
Quarter: 2006Q1

REPORT INFORMATION
  Report Type: 
  Country: None (occurrence: None)
  Receive Date: 20060127
  Receipt Date: 20041222
  Transmission Date: 20060701
  Serious: Yes (Hospitalization, Other)
  Sender: FDA-Public Use
  Company Number: 04-12-1786

PATIENT
  Age: 44 Year
  Sex: Female

DRUGS (6)
  1. CLOZAPINE [Suspect]
     Indication: PSYCHOTIC DISORDER
     Dosage: 25-400MG QD, ORAL
     Route: 048
     Dates: start: 20010501, end: 20041223
  2. PEG-INTRON [Suspect]
     Indication: HEPATITIS C
     Dosage: 120MCGT QWK, SUBCUTANEOUS
     Route: 058
     Dates: start: 20041123, end: 20041223
  3. PEG-INTRON [Suspect]
     Indication: HEPATITIS C
     Dosage: 120MCGT QWK, SUBCUTANEOUS
     Route: 058
     Dates: start: 20041213, end: 20041223
  4. REBETOL [Suspect]
     Indication: HEPATITIS C
     Dosage: ORAL
     Route: 048
     Dates: start: 20041123, end: 20041223
  5. DEPAKOTE [Concomitant]
  6. RIBAVIRIN [Concomitant]

REACTIONS (3)
  - HYPOTENSION [None]
  - NEUTROPENIA [None]
  - SOMNOLENCE [None]
